FAERS Safety Report 13361650 (Version 2)
Quarter: 2017Q2

REPORT INFORMATION
  Report Type: Spontaneous
  Country: BR (occurrence: BR)
  Receive Date: 20170323
  Receipt Date: 20170612
  Transmission Date: 20170830
  Serious: Yes (Other)
  Sender: FDA-Public Use
  Company Number: BR-ROCHE-1908592

PATIENT
  Age: 82 Year
  Sex: Female

DRUGS (12)
  1. PARACETAMOL [Concomitant]
     Active Substance: ACETAMINOPHEN
     Route: 048
     Dates: start: 20170208, end: 20170228
  2. ALDACTONE (BRAZIL) [Concomitant]
     Route: 048
     Dates: start: 20170206, end: 20170224
  3. ANSENTRON [Concomitant]
     Route: 042
     Dates: start: 20170103, end: 20170228
  4. RIVOTRIL [Suspect]
     Active Substance: CLONAZEPAM
     Indication: HALLUCINATION, VISUAL
  5. TRAMADOL HYDROCHLORIDE. [Concomitant]
     Active Substance: TRAMADOL HYDROCHLORIDE
     Route: 042
     Dates: start: 20170213, end: 20170216
  6. MOTILIUM [Concomitant]
     Active Substance: DOMPERIDONE
     Route: 048
     Dates: start: 20170210, end: 20170228
  7. LASIX [Concomitant]
     Active Substance: FUROSEMIDE
     Route: 042
     Dates: start: 20170214, end: 20170218
  8. RIVOTRIL [Suspect]
     Active Substance: CLONAZEPAM
     Indication: PSYCHOMOTOR HYPERACTIVITY
     Dosage: 2.5 MG/ML (CONTENT: 20 ML)
     Route: 065
  9. AAS [Concomitant]
     Active Substance: ASPIRIN
     Route: 048
     Dates: start: 20170208, end: 20170228
  10. ENDOFOLIN [Concomitant]
     Active Substance: FOLIC ACID
     Route: 048
     Dates: start: 20170213, end: 20170228
  11. PANTOZOL (BRAZIL) [Concomitant]
     Route: 048
     Dates: start: 20170208, end: 20170228
  12. SEROQUEL [Concomitant]
     Active Substance: QUETIAPINE FUMARATE
     Route: 048
     Dates: start: 20170208, end: 20170228

REACTIONS (5)
  - Oxygen saturation decreased [Recovered/Resolved]
  - Cyanosis [Recovered/Resolved]
  - Blood pressure decreased [Recovered/Resolved]
  - Depressed level of consciousness [Recovered/Resolved]
  - Heart rate decreased [Recovered/Resolved]
